FAERS Safety Report 8617522-X (Version None)
Quarter: 2012Q3

REPORT INFORMATION
  Report Type: 
  Country: None (occurrence: None)
  Receive Date: 20120824
  Receipt Date: 20120123
  Transmission Date: 20120928
  Serious: No
  Sender: FDA-Public Use
  Company Number: US-ASTRAZENECA-2011SE67428

PATIENT
  Sex: Female

DRUGS (2)
  1. SYMBICORT [Suspect]
     Route: 055
  2. MIDODRINE HYDROCHLORIDE [Concomitant]

REACTIONS (12)
  - ADVERSE DRUG REACTION [None]
  - HEADACHE [None]
  - NAUSEA [None]
  - SWELLING [None]
  - HYPERHIDROSIS [None]
  - MALAISE [None]
  - HYPOAESTHESIA [None]
  - COUGH [None]
  - PAIN IN EXTREMITY [None]
  - CHILLS [None]
  - PYREXIA [None]
  - PAIN [None]
